FAERS Safety Report 17918084 (Version 2)
Quarter: 2020Q3

REPORT INFORMATION
  Report Type: Spontaneous
  Country: CN (occurrence: CN)
  Receive Date: 20200619
  Receipt Date: 20200729
  Transmission Date: 20201103
  Serious: Yes (Hospitalization, Other)
  Sender: FDA-Public Use
  Company Number: CN-TAKEDA-2020TJP012036

PATIENT
  Age: 34 Year
  Sex: Male

DRUGS (1)
  1. COLCHICINE. [Suspect]
     Active Substance: COLCHICINE
     Indication: GOUT
     Dosage: UNK
     Route: 048

REACTIONS (4)
  - Overdose [Unknown]
  - Toxicity to various agents [Recovered/Resolved]
  - Demyelination [Recovered/Resolved]
  - Hyponatraemia [Unknown]
